FAERS Safety Report 8583910-3 (Version None)
Quarter: 2012Q3

REPORT INFORMATION
  Report Type: 
  Country: None (occurrence: None)
  Receive Date: 20120810
  Receipt Date: 20120625
  Transmission Date: 20120928
  Serious: No
  Sender: FDA-Public Use
  Company Number: US-009507513-1208USA000943

PATIENT

DRUGS (2)
  1. MIRALAX [Suspect]
     Indication: MEDICAL OBSERVATION
  2. MIRALAX [Suspect]
     Indication: PRODUCT USED FOR UNKNOWN INDICATION
     Dosage: UNK, UNKNOWN
     Dates: start: 20120601

REACTIONS (4)
  - BLADDER PAIN [None]
  - POLLAKIURIA [None]
  - HAEMATOCHEZIA [None]
  - PETECHIAE [None]
